FAERS Safety Report 11292117 (Version 2)
Quarter: 2015Q3

REPORT INFORMATION
  Report Type: Spontaneous
  Country: US (occurrence: US)
  Receive Date: 20150722
  Receipt Date: 20150826
  Transmission Date: 20151125
  Serious: Yes (Hospitalization)
  Sender: FDA-Public Use
  Company Number: US-BAYER-2015-382549

PATIENT
  Age: 42 Year
  Sex: Female

DRUGS (5)
  1. BUPROPION. [Concomitant]
     Active Substance: BUPROPION
     Dosage: 300 MG, UNK
     Route: 048
  2. CLONAZEPAM. [Concomitant]
     Active Substance: CLONAZEPAM
     Indication: ANXIETY
     Dosage: 0.5 MG, UNK
     Route: 048
     Dates: start: 2012, end: 2014
  3. JUNEL FE 1/20 [Concomitant]
     Active Substance: ETHINYL ESTRADIOL\NORETHINDRONE ACETATE
  4. MIRENA [Suspect]
     Active Substance: LEVONORGESTREL
     Indication: CONTRACEPTION
     Dosage: 20 MCG/24HR, CONT
     Route: 015
     Dates: start: 20130816, end: 20141010
  5. NORETHINDRONE. [Concomitant]
     Active Substance: NORETHINDRONE

REACTIONS (10)
  - Uterine perforation [None]
  - Infection [None]
  - Pain [None]
  - Diarrhoea [None]
  - Injury [None]
  - Device dislocation [None]
  - Pyrexia [None]
  - Device issue [None]
  - Device difficult to use [None]
  - Emotional distress [None]

NARRATIVE: CASE EVENT DATE: 201310
